FAERS Safety Report 9362344 (Version 1)
Quarter: 2013Q2

REPORT INFORMATION
  Report Type: Spontaneous
  Country: US (occurrence: US)
  Receive Date: 20130622
  Receipt Date: 20130622
  Transmission Date: 20140414
  Serious: No
  Sender: FDA-Public Use
  Company Number: US-US-EMD SERONO, INC.-7011307

PATIENT
  Sex: Female

DRUGS (2)
  1. REBIF [Suspect]
     Indication: PRODUCT USED FOR UNKNOWN INDICATION
     Route: 058
     Dates: start: 20070124, end: 2010
  2. REBIF [Suspect]
     Dates: start: 2010

REACTIONS (5)
  - Blood glucose abnormal [Unknown]
  - Contusion [Unknown]
  - Haematocrit decreased [Unknown]
  - Thyroid function test abnormal [Unknown]
  - Platelet count decreased [Not Recovered/Not Resolved]
